FAERS Safety Report 21434084 (Version 1)
Quarter: 2022Q4

REPORT INFORMATION
  Report Type: Spontaneous
  Country: IT (occurrence: IT)
  Receive Date: 20221010
  Receipt Date: 20221010
  Transmission Date: 20230113
  Serious: Yes (Other)
  Sender: FDA-Public Use
  Company Number: IT-AUROBINDO-AUR-APL-2014-06653

PATIENT
  Age: 53 Year
  Sex: Female

DRUGS (5)
  1. LEVETIRACETAM [Suspect]
     Active Substance: LEVETIRACETAM
     Indication: Partial seizures
     Dosage: TITRATED TO 1000 MG, TWICE A DAY
     Route: 065
  2. TOPIRAMATE [Suspect]
     Active Substance: TOPIRAMATE
     Indication: Partial seizures
     Dosage: 300 MILLIGRAM, ONCE A DAY
     Route: 065
  3. TOPIRAMATE [Suspect]
     Active Substance: TOPIRAMATE
     Dosage: 100 MILLIGRAM, TWO TIMES A DAY
     Route: 065
  4. DIAZEPAM [Concomitant]
     Active Substance: DIAZEPAM
     Indication: Product used for unknown indication
     Dosage: UNK
     Route: 065
  5. LACOSAMIDE [Concomitant]
     Active Substance: LACOSAMIDE
     Indication: Product used for unknown indication
     Dosage: UNK
     Route: 065

REACTIONS (1)
  - Seizure [Recovered/Resolved]
